FAERS Safety Report 8366588-3 (Version None)
Quarter: 2012Q1

REPORT INFORMATION
  Report Type: 
  Country: None (occurrence: None)
  Receive Date: 20120323
  Receipt Date: 20110803
  Transmission Date: 20120608
  Serious: Yes (Other)
  Sender: FDA-Public Use
  Company Number: 163-21880-11041178

PATIENT
  Sex: Female

DRUGS (12)
  1. BUSPAR(BUSPIRONE HYDROCHLORIDE)(15 MILLIGRAM, TABLETS) [Concomitant]
  2. THIAMINE HCL(THIAMINE HYDROCHLORIDE)(100 MILLIGRAM, TABLETS) [Concomitant]
  3. REVLIMID [Suspect]
     Indication: MYELODYSPLASTIC SYNDROME
     Dosage: 5 MG, 1 IN 1 D, PO
     Route: 048
     Dates: start: 20080212
  4. REVLIMID [Suspect]
     Indication: REFRACTORY ANAEMIA
     Dosage: 5 MG, 1 IN 1 D, PO
     Route: 048
     Dates: start: 20080212
  5. BABY ASPIRIN(ACETYLSALICYLIC ACID)(ENTERIC-COATED TABLET) [Concomitant]
  6. FOLIC ACID(FOLIC ACID)(1 MILLIGRAM, TABLETS) [Concomitant]
  7. CALCIUM 600 + VITAMIN D(OS-CAL)(TABLETS) [Concomitant]
  8. IMODIUM A-D(LOPERAMIDE HYDROCHLORIDE)(TABLETS) [Concomitant]
  9. GALANTAMINE HBR(GALANTAMINE HYDROBROMIDE)(8 MILLIGRAM, TABLETS) [Concomitant]
  10. VITAMIN D(ERGOCALCIFEROL)(UNKNOWN) [Concomitant]
  11. METOPROLOL TARTRATE(METOPROLOL TARTRATE)(50 MILLIGRAM, TABLETS) [Concomitant]
  12. ACETAMINOPHEN(PARACETAMOL)(325 MILLIGRAM, TABLETS) [Concomitant]

REACTIONS (1)
  - ABSCESS [None]
